FAERS Safety Report 4929908-5 (Version None)
Quarter: 2006Q1

REPORT INFORMATION
  Report Type: 
  Country: None (occurrence: None)
  Receive Date: 20060227
  Receipt Date: 20060214
  Transmission Date: 20060701
  Serious: Yes (Hospitalization, Disabling, Other)
  Sender: FDA-Public Use
  Company Number: 2004035108

PATIENT
  Age: 59 Year
  Sex: Female
  Weight: 67.586 kg

DRUGS (2)
  1. LIPITOR [Suspect]
     Indication: BLOOD CHOLESTEROL INCREASED
     Dosage: 30 MG (20 MG, 1 IN 1 D), ORAL
     Route: 048
     Dates: start: 20030701, end: 20031107
  2. TRAZODONE HCL [Concomitant]

REACTIONS (34)
  - ANGIOGRAM ABNORMAL [None]
  - ASTHENIA [None]
  - BLOOD CREATINE PHOSPHOKINASE INCREASED [None]
  - BRAIN SCAN ABNORMAL [None]
  - CONTUSION [None]
  - DEMYELINATION [None]
  - DEPRESSION [None]
  - DIARRHOEA [None]
  - DIFFICULTY IN WALKING [None]
  - DISTURBANCE IN ATTENTION [None]
  - DIZZINESS [None]
  - FATIGUE [None]
  - FEELING ABNORMAL [None]
  - FIBROMYALGIA [None]
  - FREQUENT BOWEL MOVEMENTS [None]
  - GOITRE [None]
  - INFLAMMATION [None]
  - INFLUENZA LIKE ILLNESS [None]
  - INJURY [None]
  - LYME DISEASE [None]
  - MALAISE [None]
  - MICROANGIOPATHY [None]
  - MUSCLE ATROPHY [None]
  - MUSCLE INJURY [None]
  - MUSCULAR WEAKNESS [None]
  - MYALGIA [None]
  - MYOPATHY [None]
  - NAUSEA [None]
  - NEUROPATHY PERIPHERAL [None]
  - PARAESTHESIA [None]
  - RASH [None]
  - SENSORY DISTURBANCE [None]
  - VASCULITIS [None]
  - WEIGHT DECREASED [None]
